FAERS Safety Report 18454247 (Version 1)
Quarter: 2020Q4

REPORT INFORMATION
  Report Type: Spontaneous
  Country: BR (occurrence: BR)
  Receive Date: 20201102
  Receipt Date: 20201102
  Transmission Date: 20210114
  Serious: Yes (Other)
  Sender: FDA-Public Use
  Company Number: BR-SA-2020SA307803

PATIENT

DRUGS (4)
  1. HYOSCINE BUTYLBROMIDE/METAMIZOLE SODIUM [Suspect]
     Active Substance: BUTYLSCOPOLAMINE BROMIDE\METAMIZOLE SODIUM
     Indication: PRODUCT USED FOR UNKNOWN INDICATION
     Dosage: 20 ,1 IN 1 TOTAL
     Route: 048
     Dates: start: 20201024, end: 20201024
  2. BUPROPION HYDROCHLORIDE. [Suspect]
     Active Substance: BUPROPION HYDROCHLORIDE
     Indication: PRODUCT USED FOR UNKNOWN INDICATION
     Dosage: 10 DF, TOTAL (150 MG)
     Route: 048
     Dates: start: 20201024, end: 20201024
  3. ALLEGRA [Suspect]
     Active Substance: FEXOFENADINE HYDROCHLORIDE
     Indication: PRODUCT USED FOR UNKNOWN INDICATION
     Dosage: 3 DF, TOTAL (120 MG)
     Route: 048
     Dates: start: 20201024, end: 20201024
  4. CICLOBENZAPRINA [CYCLOBENZAPRINE] [Suspect]
     Active Substance: CYCLOBENZAPRINE
     Indication: PRODUCT USED FOR UNKNOWN INDICATION
     Dosage: 10 DF
     Route: 048
     Dates: start: 20201024, end: 20201024

REACTIONS (5)
  - Agitation [Unknown]
  - Somnolence [Unknown]
  - Depressed level of consciousness [Unknown]
  - Tachycardia [Unknown]
  - Suicide attempt [Recovered/Resolved]

NARRATIVE: CASE EVENT DATE: 20201024
